FAERS Safety Report 9846154 (Version 1)
Quarter: 2014Q1

REPORT INFORMATION
  Report Type: Spontaneous
  Country: AU (occurrence: AU)
  Receive Date: 20140127
  Receipt Date: 20140127
  Transmission Date: 20141002
  Serious: Yes (Hospitalization, Other)
  Sender: FDA-Public Use
  Company Number: AU-JNJFOC-20140111989

PATIENT
  Age: 81 Year
  Sex: Female

DRUGS (8)
  1. RIVAROXABAN [Suspect]
     Indication: ATRIAL FIBRILLATION
     Route: 065
  2. ACETYLSALICYLIC ACID [Suspect]
     Indication: ACUTE MYOCARDIAL INFARCTION
     Route: 065
  3. SIMVASTATIN [Concomitant]
     Route: 065
  4. ESCITALOPRAM [Concomitant]
     Route: 065
  5. CARVEDILOL [Concomitant]
     Route: 065
  6. FUROSEMIDE [Concomitant]
     Route: 065
  7. BUPRENORPHINE [Concomitant]
     Route: 062
  8. AMIODARONE [Concomitant]
     Route: 065

REACTIONS (3)
  - Gastrointestinal haemorrhage [Recovered/Resolved]
  - Haemoglobin decreased [Unknown]
  - Orthostatic hypotension [Unknown]
